FAERS Safety Report 7981322-4 (Version None)
Quarter: 2011Q4

REPORT INFORMATION
  Report Type: 
  Country: None (occurrence: None)
  Receive Date: 20111213
  Receipt Date: 20111205
  Transmission Date: 20120403
  Serious: Yes (Other)
  Sender: FDA-Public Use
  Company Number: AUR-APL-2011-06100

PATIENT
  Age: 51 Year
  Sex: Male

DRUGS (5)
  1. ATORVASTATIN CALCIUM [Suspect]
     Indication: BLOOD CHOLESTEROL
  2. SIMVASTATIN [Suspect]
     Indication: BLOOD CHOLESTEROL
  3. ETANERCEPT (ETANERCEPT) [Concomitant]
  4. ROSUVASTATIN [Suspect]
     Indication: BLOOD CHOLESTEROL
  5. GTN (GLYCERYL TRINITRATE) [Concomitant]

REACTIONS (4)
  - CONDITION AGGRAVATED [None]
  - PAIN IN EXTREMITY [None]
  - RHEUMATOID ARTHRITIS [None]
  - ARTHRALGIA [None]
